FAERS Safety Report 8549458-7 (Version None)
Quarter: 2012Q3

REPORT INFORMATION
  Report Type: 
  Country: None (occurrence: None)
  Receive Date: 20120730
  Receipt Date: 20120723
  Transmission Date: 20120928
  Serious: No
  Sender: FDA-Public Use
  Company Number: US-B.I. PHARMACEUTICALS,INC./RIDGEFIELD-2012-BP-16327BP

PATIENT
  Sex: Female

DRUGS (11)
  1. SYMBICORT [Concomitant]
     Indication: ASTHMA
     Route: 055
  2. SPIRIVA [Suspect]
     Route: 048
     Dates: start: 20120723, end: 20120723
  3. VITAMIN D [Concomitant]
     Indication: HYPOVITAMINOSIS
     Route: 048
  4. ZOCOR [Concomitant]
     Indication: BLOOD CHOLESTEROL
     Dosage: 20 MG
     Route: 048
  5. ASPIRIN [Concomitant]
     Indication: VITAMIN B12 DEFICIENCY
     Dosage: 325 MG
     Route: 048
     Dates: start: 20110101
  6. MEDICATION NOT FURTHER SPECIFIED [Concomitant]
     Indication: DYSPNOEA
     Route: 055
  7. VITAMIN B-12 [Concomitant]
     Indication: HYPOVITAMINOSIS
     Route: 048
  8. LOSARTAN POTASSIUM [Concomitant]
     Indication: BLOOD PRESSURE
     Dosage: 50 MG
     Dates: start: 20110101
  9. HYDROCHLOROTHIAZIDE [Concomitant]
     Indication: DIURETIC THERAPY
     Dosage: 25 MG
     Route: 048
     Dates: start: 20110101
  10. LEVOFLOXACIN [Concomitant]
     Indication: THYROID DISORDER
     Dosage: 25 MG
     Route: 048
  11. SPIRIVA [Suspect]
     Indication: CHRONIC OBSTRUCTIVE PULMONARY DISEASE
     Dosage: 18 MCG
     Route: 055
     Dates: start: 20120101

REACTIONS (2)
  - DYSPNOEA [None]
  - INCORRECT ROUTE OF DRUG ADMINISTRATION [None]
